FAERS Safety Report 6034575-6 (Version None)
Quarter: 2009Q1

REPORT INFORMATION
  Report Type: 
  Country: None (occurrence: None)
  Receive Date: 20090112
  Receipt Date: 20081211
  Transmission Date: 20090719
  Serious: Yes (Other)
  Sender: FDA-Public Use
  Company Number: IE-PFIZER INC-2007087762

PATIENT

DRUGS (3)
  1. LIPITOR [Suspect]
     Route: 048
  2. BISOPROLOL [Suspect]
     Dosage: 5 MG, UNK
     Dates: start: 20070101, end: 20070101
  3. ALL OTHER THERAPEUTIC PRODUCTS [Concomitant]

REACTIONS (2)
  - HALLUCINATION [None]
  - NIGHTMARE [None]
